FAERS Safety Report 6589234-8 (Version None)
Quarter: 2010Q1

REPORT INFORMATION
  Report Type: 
  Country: None (occurrence: None)
  Receive Date: 20100212
  Receipt Date: 20100129
  Transmission Date: 20100710
  Serious: Yes (Life-Threatening)
  Sender: FDA-Public Use
  Company Number: 499739

PATIENT
  Age: 59 Year
  Sex: Female

DRUGS (6)
  1. CARBOPLATIN [Suspect]
     Indication: CERVIX CARCINOMA
     Dosage: 91 MG, INTRAVENOUS
     Route: 042
     Dates: start: 20090506, end: 20090506
  2. PACLITAXEL [Suspect]
  3. (POLARAMINE /00043702/) [Concomitant]
  4. (ZOPHREN /00955302/) [Concomitant]
  5. ONDANSETRON [Concomitant]
  6. RANITIDINE HCL [Concomitant]

REACTIONS (2)
  - ERYTHEMA [None]
  - SHOCK [None]
